FAERS Safety Report 12522882 (Version 1)
Quarter: 2016Q3

REPORT INFORMATION
  Report Type: Report from Study
  Country: CA (occurrence: CA)
  Receive Date: 20160701
  Receipt Date: 20160701
  Transmission Date: 20161109
  Serious: Yes (Hospitalization, Other)
  Sender: FDA-Public Use
  Company Number: CA-ABBVIE-16K-028-1662254-00

PATIENT
  Sex: Male
  Weight: 75 kg

DRUGS (1)
  1. HUMIRA [Suspect]
     Active Substance: ADALIMUMAB
     Indication: CROHN^S DISEASE
     Route: 058
     Dates: start: 20150812, end: 201605

REACTIONS (3)
  - Intestinal stenosis [Unknown]
  - Intestinal obstruction [Recovering/Resolving]
  - Intestinal fibrosis [Unknown]

NARRATIVE: CASE EVENT DATE: 2016
